FAERS Safety Report 6274422-0 (Version None)
Quarter: 2009Q3

REPORT INFORMATION
  Report Type: 
  Country: None (occurrence: None)
  Receive Date: 20090720
  Receipt Date: 20090708
  Transmission Date: 20100115
  Serious: Yes (Other)
  Sender: FDA-Public Use
  Company Number: BR-PFIZER INC-2009238753

PATIENT
  Age: 43 Year

DRUGS (2)
  1. FRONTAL [Suspect]
     Indication: ANXIETY
     Dosage: UNK
     Dates: start: 19990101
  2. TOPIRAMATE [Concomitant]
     Dosage: UNK

REACTIONS (2)
  - INTERVERTEBRAL DISC PROTRUSION [None]
  - LUMBAR HERNIA [None]
